FAERS Safety Report 7861090-7 (Version None)
Quarter: 2011Q4

REPORT INFORMATION
  Report Type: 
  Country: None (occurrence: None)
  Receive Date: 20111027
  Receipt Date: 20111018
  Transmission Date: 20120403
  Serious: Yes (Hospitalization, Other)
  Sender: FDA-Public Use
  Company Number: US-ASTRAZENECA-2009SE32961

PATIENT
  Age: 55 Year
  Sex: Female
  Weight: 49.9 kg

DRUGS (11)
  1. SEROQUEL [Suspect]
     Route: 048
     Dates: start: 20110811
  2. SEROQUEL [Suspect]
     Route: 048
     Dates: start: 20110811
  3. SEROQUEL [Suspect]
     Indication: BIPOLAR DISORDER
     Route: 048
     Dates: start: 20010101, end: 20110701
  4. TRAZODONE HYDROCHLORIDE [Concomitant]
     Indication: BIPOLAR DISORDER
  5. SEROQUEL [Suspect]
     Indication: AFFECTIVE DISORDER
     Route: 048
     Dates: start: 20010101, end: 20110701
  6. SEROQUEL [Suspect]
     Indication: INSOMNIA
     Route: 048
     Dates: start: 20010101, end: 20110701
  7. SEROQUEL [Suspect]
     Route: 048
     Dates: start: 20110701
  8. TRAZODONE HYDROCHLORIDE [Concomitant]
     Route: 048
     Dates: start: 20090101
  9. SEROQUEL [Suspect]
     Route: 048
     Dates: start: 20110811
  10. SEROQUEL [Suspect]
     Route: 048
     Dates: start: 20110701
  11. SEROQUEL [Suspect]
     Route: 048
     Dates: start: 20110701

REACTIONS (9)
  - INTENTIONAL DRUG MISUSE [None]
  - SLEEP TALKING [None]
  - DRUG DOSE OMISSION [None]
  - HAND FRACTURE [None]
  - STRESS [None]
  - SOMNAMBULISM [None]
  - WEIGHT GAIN POOR [None]
  - HIP FRACTURE [None]
  - FALL [None]
